FAERS Safety Report 7823384-0 (Version None)
Quarter: 2011Q4

REPORT INFORMATION
  Report Type: 
  Country: None (occurrence: None)
  Receive Date: 20111014
  Receipt Date: 20110928
  Transmission Date: 20120403
  Serious: Yes (Hospitalization, Other)
  Sender: FDA-Public Use
  Company Number: 2011P1009169

PATIENT
  Age: 12 Year
  Sex: Female
  Weight: 72.5755 kg

DRUGS (4)
  1. CLARITIN [Concomitant]
  2. DIAMOX SRC [Suspect]
     Indication: MASS
     Dates: start: 20010101, end: 20010101
  3. PENICILLIN [Concomitant]
  4. MINOCYCLINE HCL [Suspect]
     Indication: ACNE
     Dosage: QD
     Dates: start: 20001101, end: 20010101

REACTIONS (10)
  - SWELLING [None]
  - HYPERSENSITIVITY [None]
  - TINNITUS [None]
  - SOMNOLENCE [None]
  - VISUAL IMPAIRMENT [None]
  - LOSS OF CONSCIOUSNESS [None]
  - BLINDNESS [None]
  - MASS [None]
  - ADVERSE EVENT [None]
  - WEIGHT DECREASED [None]
